FAERS Safety Report 21070301 (Version 3)
Quarter: 2022Q3

REPORT INFORMATION
  Report Type: Spontaneous
  Country: JP (occurrence: JP)
  Receive Date: 20220712
  Receipt Date: 20220920
  Transmission Date: 20221026
  Serious: Yes (Other)
  Sender: FDA-Public Use
  Company Number: JP-CHUGAI-2022026477

PATIENT
  Age: 52 Year
  Sex: Female
  Weight: 47.2 kg

DRUGS (5)
  1. ACTEMRA [Suspect]
     Active Substance: TOCILIZUMAB
     Indication: Rheumatoid arthritis
     Dosage: 8 MILLIGRAM/KILOGRAM, ONCE/MONTH
     Route: 041
     Dates: start: 20220603
  2. METHOTREXATE [Concomitant]
     Active Substance: METHOTREXATE
     Dosage: 6 MILLIGRAM, ONCE/WEEK
     Route: 048
     Dates: start: 20210213
  3. TAMOXIFEN CITRATE [Concomitant]
     Active Substance: TAMOXIFEN CITRATE
     Dosage: 20 MILLIGRAM, QD
     Route: 048
     Dates: start: 201607
  4. BUCILLAMINE [Concomitant]
     Active Substance: BUCILLAMINE
     Dosage: 200 MILLIGRAM, QD
     Route: 048
     Dates: start: 20210127
  5. IGURATIMOD [Concomitant]
     Active Substance: IGURATIMOD
     Dosage: 50 MILLIGRAM, QD
     Route: 048
     Dates: start: 20220122

REACTIONS (1)
  - Bradycardia [Recovered/Resolved]

NARRATIVE: CASE EVENT DATE: 20220603
